FAERS Safety Report 5335981-5 (Version None)
Quarter: 2007Q2

REPORT INFORMATION
  Report Type: 
  Country: None (occurrence: None)
  Receive Date: 20070302
  Receipt Date: 20060130
  Transmission Date: 20071010
  Serious: Yes (Hospitalization)
  Sender: FDA-Public Use
  Company Number: 2092

PATIENT
  Age: 56 Year
  Sex: Male

DRUGS (1)
  1. TARGRETIN [Suspect]
     Indication: ACUTE MYELOID LEUKAEMIA
     Dosage: 150 MG/M^2 DAILY PO
     Route: 048
     Dates: start: 20050427, end: 20050602

REACTIONS (2)
  - EYE HAEMORRHAGE [None]
  - HYPERVITAMINOSIS [None]
